FAERS Safety Report 23860245 (Version 1)
Quarter: 2024Q2

REPORT INFORMATION
  Report Type: Spontaneous
  Country: US (occurrence: US)
  Receive Date: 20240515
  Receipt Date: 20240515
  Transmission Date: 20240716
  Serious: No
  Sender: FDA-Public Use
  Company Number: US-BAUSCHBL-2024BNL026740

PATIENT
  Age: 64 Year
  Sex: Female

DRUGS (2)
  1. DEXAMETHASONE\NEOMYCIN\POLYMYXIN B SULFATE [Suspect]
     Active Substance: DEXAMETHASONE\NEOMYCIN\POLYMYXIN B SULFATE
     Indication: Dry eye
     Dosage: APPLY A HALF INCH RIBBON TO LOWER LID AT NIGHT TO BOTH EYES
     Route: 047
     Dates: start: 2022
  2. DEXAMETHASONE\NEOMYCIN\POLYMYXIN B SULFATE [Suspect]
     Active Substance: DEXAMETHASONE\NEOMYCIN\POLYMYXIN B SULFATE
     Indication: Eye inflammation
     Route: 047

REACTIONS (8)
  - Vision blurred [Unknown]
  - Product use issue [Unknown]
  - Product physical consistency issue [Unknown]
  - Product dose omission in error [Unknown]
  - Product use complaint [Unknown]
  - Wrong dose [Unknown]
  - Product quality issue [Unknown]
  - Poor quality product administered [Unknown]
